FAERS Safety Report 7072803-9 (Version None)
Quarter: 2010Q4

REPORT INFORMATION
  Report Type: 
  Country: None (occurrence: None)
  Receive Date: 20101029
  Receipt Date: 20100316
  Transmission Date: 20110411
  Serious: No
  Sender: FDA-Public Use
  Company Number: A0850449A

PATIENT
  Age: 70 Year
  Sex: Female

DRUGS (6)
  1. ADVAIR DISKUS 100/50 [Suspect]
     Indication: CHRONIC OBSTRUCTIVE PULMONARY DISEASE
     Dosage: 1PUFF TWICE PER DAY
     Route: 055
     Dates: start: 20060101
  2. SPIRIVA [Concomitant]
  3. PLAVIX [Concomitant]
  4. BENICAR [Concomitant]
  5. M.V.I. [Concomitant]
  6. PRAVASTATIN [Concomitant]

REACTIONS (2)
  - CANDIDIASIS [None]
  - LARYNGITIS [None]
